FAERS Safety Report 9665436 (Version 1)
Quarter: 2013Q4

REPORT INFORMATION
  Report Type: Spontaneous
  Country: US (occurrence: US)
  Receive Date: 20131104
  Receipt Date: 20131104
  Transmission Date: 20140711
  Serious: No
  Sender: FDA-Public Use
  Company Number: US-009507513-1310USA011238

PATIENT
  Sex: Female

DRUGS (2)
  1. AZASITE [Suspect]
     Indication: BLEPHARITIS
     Dosage: INSTILL ONE DROP IN EACH EYE AT BEDTIME
     Route: 047
     Dates: start: 20131019
  2. AZASITE [Suspect]
     Indication: OCULAR ROSACEA

REACTIONS (3)
  - Drug dose omission [Unknown]
  - Product quality issue [Unknown]
  - No adverse event [Unknown]
